FAERS Safety Report 17574035 (Version 1)
Quarter: 2020Q1

REPORT INFORMATION
  Report Type: Spontaneous
  Country: US (occurrence: US)
  Receive Date: 20200323
  Receipt Date: 20200323
  Transmission Date: 20200409
  Serious: Yes (Hospitalization)
  Sender: FDA-Public Use
  Company Number: US-IBSA PHARMA INC.-2020IBS000043

PATIENT

DRUGS (3)
  1. TIROSINT-SOL [Suspect]
     Active Substance: LEVOTHYROXINE SODIUM
     Indication: HYPOTHYROIDISM
     Dosage: 13 ?G, QOD
     Route: 048
     Dates: end: 20200101
  2. AMLODIPINE [Concomitant]
     Active Substance: AMLODIPINE BESYLATE
     Indication: PRODUCT USED FOR UNKNOWN INDICATION
     Dosage: UNK
     Route: 065
  3. TYLENOL [Concomitant]
     Active Substance: ACETAMINOPHEN
     Indication: PRODUCT USED FOR UNKNOWN INDICATION
     Dosage: UNK
     Route: 065

REACTIONS (9)
  - Nail pitting [Not Recovered/Not Resolved]
  - Tooth fracture [Not Recovered/Not Resolved]
  - Muscle spasms [Not Recovered/Not Resolved]
  - Calcium deficiency [Not Recovered/Not Resolved]
  - Irritability [Not Recovered/Not Resolved]
  - Tooth loss [Not Recovered/Not Resolved]
  - Hip fracture [Not Recovered/Not Resolved]
  - Fall [Not Recovered/Not Resolved]
  - Headache [Not Recovered/Not Resolved]

NARRATIVE: CASE EVENT DATE: 201912
